FAERS Safety Report 18741223 (Version 1)
Quarter: 2021Q1

REPORT INFORMATION
  Report Type: Spontaneous
  Country: US (occurrence: US)
  Receive Date: 20210114
  Receipt Date: 20210114
  Transmission Date: 20210419
  Serious: Yes (Other)
  Sender: FDA-Public Use
  Company Number: US-GLAXOSMITHKLINE-US2021004416

PATIENT
  Sex: Male

DRUGS (1)
  1. TRELEGY ELLIPTA [Suspect]
     Active Substance: FLUTICASONE FUROATE\UMECLIDINIUM BROMIDE\VILANTEROL TRIFENATATE
     Indication: CHRONIC OBSTRUCTIVE PULMONARY DISEASE
     Dosage: 1 PUFF(S), QD
     Route: 055
     Dates: start: 20190108

REACTIONS (6)
  - Blood glucose increased [Not Recovered/Not Resolved]
  - Brain neoplasm [Unknown]
  - Intraocular pressure increased [Not Recovered/Not Resolved]
  - Cataract operation [Unknown]
  - Gastrointestinal disorder [Unknown]
  - Borderline glaucoma [Unknown]
